FAERS Safety Report 4438233-0 (Version None)
Quarter: 2004Q3

REPORT INFORMATION
  Report Type: 
  Country: None (occurrence: None)
  Receive Date: 20040831
  Receipt Date: 20040624
  Transmission Date: 20050211
  Serious: No
  Sender: FDA-Public Use
  Company Number: US-GLAXOSMITHKLINE-A0515897A

PATIENT
  Age: 53 Year
  Sex: Female

DRUGS (4)
  1. WELLBUTRIN XL [Suspect]
     Indication: DEPRESSION
     Dosage: 450MG PER DAY
     Route: 048
     Dates: start: 20040501
  2. REMICADE [Concomitant]
  3. IMITREX [Concomitant]
  4. EFFEXOR [Concomitant]

REACTIONS (1)
  - DRUG INEFFECTIVE [None]
